FAERS Safety Report 15613885 (Version 3)
Quarter: 2020Q3

REPORT INFORMATION
  Report Type: Spontaneous
  Country: US (occurrence: US)
  Receive Date: 20181113
  Receipt Date: 20200828
  Transmission Date: 20201102
  Serious: Yes (Other)
  Sender: FDA-Public Use
  Company Number: US-JNJFOC-20181110269

PATIENT
  Age: 66 Year
  Sex: Female
  Weight: 72.64 kg

DRUGS (4)
  1. TRAMADOL HYDROCHLORIDE. [Suspect]
     Active Substance: TRAMADOL HYDROCHLORIDE
     Indication: PRODUCT USED FOR UNKNOWN INDICATION
     Route: 048
  2. ULTRAM [Suspect]
     Active Substance: TRAMADOL HYDROCHLORIDE
     Route: 048
  3. ULTRAM [Suspect]
     Active Substance: TRAMADOL HYDROCHLORIDE
     Indication: PAIN
     Route: 048
  4. SYNTHROID [Concomitant]
     Active Substance: LEVOTHYROXINE SODIUM
     Route: 065

REACTIONS (12)
  - Visual impairment [Unknown]
  - Suspected product tampering [Unknown]
  - Malaise [Unknown]
  - Vomiting [Unknown]
  - Constipation [Unknown]
  - Fall [Unknown]
  - Spinal fracture [Unknown]
  - Hip arthroplasty [Unknown]
  - Unevaluable event [Unknown]
  - Drug ineffective [Unknown]
  - Lower limb fracture [Unknown]
  - Migraine [Unknown]

NARRATIVE: CASE EVENT DATE: 201606
